FAERS Safety Report 13061368 (Version 1)
Quarter: 2016Q4

REPORT INFORMATION
  Report Type: Spontaneous
  Country: CA (occurrence: CA)
  Receive Date: 20161226
  Receipt Date: 20161226
  Transmission Date: 20170207
  Serious: Yes (Other)
  Sender: FDA-Public Use
  Company Number: CA-ROCHE-1871470

PATIENT
  Age: 58 Year
  Sex: Female
  Weight: 114 kg

DRUGS (11)
  1. DIPHENHYDRAMINE. [Concomitant]
     Active Substance: DIPHENHYDRAMINE
     Indication: PREMEDICATION
     Route: 048
  2. LOSEC [Concomitant]
     Active Substance: OMEPRAZOLE
     Route: 065
  3. RITUXAN [Suspect]
     Active Substance: RITUXIMAB
     Indication: GRANULOMATOSIS WITH POLYANGIITIS
  4. NASONEX [Suspect]
     Active Substance: MOMETASONE FUROATE
     Indication: PRODUCT USED FOR UNKNOWN INDICATION
     Route: 065
  5. DORZOLAMIDE HYDROCHLORIDE AND TIMOLOL MALEATE [Concomitant]
     Active Substance: DORZOLAMIDE HYDROCHLORIDE\TIMOLOL MALEATE
  6. SODIUM BICARBONATE. [Concomitant]
     Active Substance: SODIUM BICARBONATE
     Route: 065
  7. ZOPICLONE [Concomitant]
     Active Substance: ZOPICLONE
     Route: 065
  8. RITUXAN [Suspect]
     Active Substance: RITUXIMAB
     Indication: LYMPHOMA
     Route: 042
  9. WARFARIN [Concomitant]
     Active Substance: WARFARIN
  10. ADVAIR HFA [Concomitant]
     Active Substance: FLUTICASONE PROPIONATE\SALMETEROL XINAFOATE
     Route: 065
  11. AVAMYS [Concomitant]
     Active Substance: FLUTICASONE FUROATE
     Route: 065

REACTIONS (23)
  - Blood pressure diastolic decreased [Not Recovered/Not Resolved]
  - Infection [Not Recovered/Not Resolved]
  - Pneumonia [Not Recovered/Not Resolved]
  - Spinal compression fracture [Not Recovered/Not Resolved]
  - Lower respiratory tract infection [Not Recovered/Not Resolved]
  - Scar [Not Recovered/Not Resolved]
  - Hypertension [Not Recovered/Not Resolved]
  - Somnolence [Not Recovered/Not Resolved]
  - Wheezing [Not Recovered/Not Resolved]
  - Diarrhoea [Not Recovered/Not Resolved]
  - Weight decreased [Not Recovered/Not Resolved]
  - Flushing [Not Recovered/Not Resolved]
  - Headache [Not Recovered/Not Resolved]
  - Hypotension [Not Recovered/Not Resolved]
  - Oral pruritus [Not Recovered/Not Resolved]
  - Epistaxis [Not Recovered/Not Resolved]
  - Infusion related reaction [Not Recovered/Not Resolved]
  - Breath sounds abnormal [Not Recovered/Not Resolved]
  - Chest discomfort [Not Recovered/Not Resolved]
  - Feeling hot [Not Recovered/Not Resolved]
  - Poor quality sleep [Not Recovered/Not Resolved]
  - Renal disorder [Not Recovered/Not Resolved]
  - Weight increased [Not Recovered/Not Resolved]
